FAERS Safety Report 9319756 (Version 1)
Quarter: 2013Q2

REPORT INFORMATION
  Report Type: Spontaneous
  Country: US (occurrence: US)
  Receive Date: 20130530
  Receipt Date: 20130530
  Transmission Date: 20140414
  Serious: Yes (Death)
  Sender: FDA-Public Use
  Company Number: US-GLAXOSMITHKLINE-A1024956A

PATIENT
  Age: 43 Year
  Sex: Male

DRUGS (7)
  1. VOTRIENT [Suspect]
     Indication: PRODUCT USED FOR UNKNOWN INDICATION
     Dosage: 800MG PER DAY
     Route: 048
  2. COUMADIN [Concomitant]
  3. MORPHINE SULFATE [Concomitant]
  4. POTASSIUM [Concomitant]
  5. VITAMIN D3 [Concomitant]
  6. PROBIOTIC [Concomitant]
  7. MELATONIN [Concomitant]

REACTIONS (1)
  - Death [Fatal]
